FAERS Safety Report 9167522 (Version 1)
Quarter: 2013Q1

REPORT INFORMATION
  Report Type: Report from Study
  Country: BE (occurrence: BE)
  Receive Date: 20130318
  Receipt Date: 20130318
  Transmission Date: 20140127
  Serious: Yes (Disabling, Other)
  Sender: FDA-Public Use
  Company Number: BE-GENZYME-CLOF-1002518

PATIENT
  Age: 52 None
  Sex: Male
  Weight: 66 kg

DRUGS (11)
  1. EVOLTRA [Suspect]
     Indication: ACUTE MYELOID LEUKAEMIA
     Dosage: 17.9 MG, UNK
     Route: 042
     Dates: start: 20130205
  2. CYTARABINE [Suspect]
     Indication: ACUTE MYELOID LEUKAEMIA
     Dosage: 1790 MG, UNK
     Route: 042
     Dates: start: 20130205
  3. AMSACRINE [Suspect]
     Indication: ACUTE MYELOID LEUKAEMIA
     Dosage: 214.8 MG, UNK
     Route: 042
     Dates: start: 20130208
  4. ASAFLOW [Concomitant]
     Indication: CARDIOVASCULAR DISORDER
     Dosage: 160 MG, UNK
     Route: 048
  5. LISITRIL [Concomitant]
     Indication: HYPERTENSION
     Dosage: 25 MG, UNK
     Route: 048
  6. LENORMIN [Concomitant]
     Indication: HYPERTENSION
     Dosage: 10 MG, UNK
     Route: 048
  7. LANTUS [Concomitant]
     Indication: DIABETES MELLITUS
     Dosage: 12 U/ML, UNK
     Route: 058
  8. TAZOCIN [Concomitant]
     Indication: PRODUCT USED FOR UNKNOWN INDICATION
     Dosage: 12 G, QD
     Route: 042
     Dates: start: 20130214
  9. AMUKIN [Concomitant]
     Indication: PRODUCT USED FOR UNKNOWN INDICATION
     Dosage: 1.5 G, QD
     Route: 042
     Dates: start: 20130214
  10. AMLOR [Concomitant]
     Indication: HYPERTENSION
     Dosage: 5 MG, QD
     Route: 048
     Dates: start: 20130207
  11. NOVORAPID [Concomitant]
     Indication: DIABETES MELLITUS
     Dosage: 4 U/ML, UNK
     Route: 058

REACTIONS (4)
  - Bone marrow failure [Unknown]
  - Inflammation [Unknown]
  - Diarrhoea [Unknown]
  - Septic shock [Recovered/Resolved]
